FAERS Safety Report 7487198-6 (Version None)
Quarter: 2011Q2

REPORT INFORMATION
  Report Type: 
  Country: None (occurrence: None)
  Receive Date: 20110510
  Receipt Date: 20110420
  Transmission Date: 20111010
  Serious: Yes (Life-Threatening, Hospitalization)
  Sender: FDA-Public Use
  Company Number: 54973 AE# 444

PATIENT
  Age: 2 Month
  Sex: Female
  Weight: 5 kg

DRUGS (3)
  1. HYLAND'S COLD 'N COUGH 4 KIDS [Suspect]
     Indication: SNEEZING
     Dosage: 1/4 TSP EVERY 4 HOURS
  2. HYLAND'S COLD 'N COUGH 4 KIDS [Suspect]
     Indication: OROPHARYNGEAL PAIN
     Dosage: 1/4 TSP EVERY 4 HOURS
  3. HYLAND'S COLD 'N COUGH 4 KIDS [Suspect]
     Indication: COUGH
     Dosage: 1/4 TSP EVERY 4 HOURS

REACTIONS (1)
  - RESPIRATORY DISTRESS [None]
